FAERS Safety Report 5449749-2 (Version None)
Quarter: 2007Q3

REPORT INFORMATION
  Report Type: 
  Country: None (occurrence: None)
  Receive Date: 20070912
  Receipt Date: 20070907
  Transmission Date: 20080115
  Serious: Yes (Life-Threatening)
  Sender: FDA-Public Use
  Company Number: HQWYE070007SEP07

PATIENT
  Sex: Female

DRUGS (2)
  1. CORDAREX [Suspect]
     Indication: ATRIAL FLUTTER
     Dosage: 25 MG ONE TIME DOSE
     Route: 040
     Dates: start: 20070827, end: 20070827
  2. CORDAREX [Suspect]
     Dosage: TOTAL DOSE OF 800 MG
     Route: 048
     Dates: start: 20070826, end: 20070827

REACTIONS (8)
  - APNOEA [None]
  - BLOOD PRESSURE INCREASED [None]
  - FATIGUE [None]
  - HEART RATE INCREASED [None]
  - LOSS OF CONSCIOUSNESS [None]
  - MUSCLE SPASMS [None]
  - PHARMACEUTICAL PRODUCT COMPLAINT [None]
  - RETCHING [None]
